FAERS Safety Report 5670943-X (Version None)
Quarter: 2008Q1

REPORT INFORMATION
  Report Type: 
  Country: None (occurrence: None)
  Receive Date: 20080313
  Receipt Date: 20080226
  Transmission Date: 20080703
  Serious: Yes (Other)
  Sender: FDA-Public Use
  Company Number: SPV1-2008-00410

PATIENT
  Sex: Female

DRUGS (2)
  1. VYVANSE [Suspect]
     Dosage: 1X/DAY: QD, ORAL
     Route: 048
     Dates: end: 20080201
  2. PROZAC [Concomitant]

REACTIONS (2)
  - MENTAL DISORDER [None]
  - SUICIDAL IDEATION [None]
